FAERS Safety Report 26097112 (Version 1)
Quarter: 2025Q4

REPORT INFORMATION
  Report Type: Report from Study
  Country: US (occurrence: US)
  Receive Date: 20251127
  Receipt Date: 20251127
  Transmission Date: 20260118
  Serious: Yes (Other)
  Sender: ABBVIE
  Company Number: US-ABBVIE-6250461

PATIENT
  Age: 63 Year
  Sex: Female

DRUGS (2)
  1. HUMIRA [Suspect]
     Active Substance: ADALIMUMAB
     Indication: Rheumatoid arthritis
     Route: 058
     Dates: start: 202203
  2. HUMIRA [Suspect]
     Active Substance: ADALIMUMAB
     Dosage: CITRATE FREE. FORM STRENGTH: 40 MG
     Route: 058

REACTIONS (8)
  - Hip fracture [Unknown]
  - Vulvovaginal candidiasis [Recovered/Resolved]
  - Fall [Not Recovered/Not Resolved]
  - Onychomycosis [Not Recovered/Not Resolved]
  - Osteoarthritis [Unknown]
  - Limb injury [Unknown]
  - Arthritis [Unknown]
  - Joint injury [Unknown]

NARRATIVE: CASE EVENT DATE: 20240101
